FAERS Safety Report 12456044 (Version 12)
Quarter: 2019Q1

REPORT INFORMATION
  Report Type: Report from Study
  Country: FR (occurrence: FR)
  Receive Date: 20160610
  Receipt Date: 20190212
  Transmission Date: 20190417
  Serious: Yes (Hospitalization, Other)
  Sender: FDA-Public Use
  Company Number: FR-BRISTOL-MYERS SQUIBB COMPANY-BMS-2016-042712

PATIENT
  Age: 39 Year
  Sex: Female
  Weight: 66 kg

DRUGS (10)
  1. EUPHYTOSE                          /05965601/ [Suspect]
     Active Substance: HERBALS
     Indication: SLEEP DISORDER
     Dosage: 1 DF, QD
     Route: 048
     Dates: start: 20150506
  2. TENOFOVIR DISOPROXIL FUMARATE. [Suspect]
     Active Substance: TENOFOVIR DISOPROXIL FUMARATE
     Indication: HEPATITIS B
     Dosage: 245 MG, QD
     Route: 048
     Dates: start: 20150311
  3. PARACETAMOL [Suspect]
     Active Substance: ACETAMINOPHEN
     Indication: PAIN
     Dosage: 1000 MG, TID
     Route: 048
     Dates: start: 20150506
  4. AERIUS (DESLORATADINE) [Suspect]
     Active Substance: DESLORATADINE
     Indication: HYPERSENSITIVITY
     Dosage: 5 MG, QD
     Route: 048
     Dates: start: 20150506
  5. LEVOTHYROX [Suspect]
     Active Substance: LEVOTHYROXINE
     Indication: HYPOTHYROIDISM
     Dosage: 100 ?G, QD
     Route: 048
     Dates: start: 2004
  6. ENTECAVIR. [Suspect]
     Active Substance: ENTECAVIR
     Indication: HEPATITIS B
     Dosage: 0.5 MG, QD
     Route: 048
     Dates: end: 20111007
  7. ENTECAVIR. [Suspect]
     Active Substance: ENTECAVIR
     Indication: PRODUCT USED FOR UNKNOWN INDICATION
     Dosage: 0.5 MG, QD
     Route: 048
     Dates: start: 20111007, end: 20150311
  8. PIVALONE                           /00803802/ [Suspect]
     Active Substance: TIXOCORTOL PIVALATE
     Indication: HYPERSENSITIVITY
     Dosage: 1 DF, BID
     Route: 045
     Dates: start: 20150615
  9. ENTECAVIR. [Suspect]
     Active Substance: ENTECAVIR
     Indication: PRODUCT USED FOR UNKNOWN INDICATION
     Dosage: 0.5 MG, QD
     Route: 048
     Dates: start: 20150311
  10. TARDYFERON B9                      /00023601/ [Suspect]
     Active Substance: FERROUS SULFATE\FOLIC ACID
     Indication: MINERAL SUPPLEMENTATION
     Dosage: 80 MG, QD
     Route: 048
     Dates: start: 20150615

REACTIONS (11)
  - Maternal exposure during pregnancy [Recovered/Resolved]
  - Varicose vein [Unknown]
  - Hysterotomy [Unknown]
  - Premature delivery [Unknown]
  - Proteinuria [Unknown]
  - Constipation [Unknown]
  - Off label use [Unknown]
  - Hypertension [Unknown]
  - Caesarean section [Unknown]
  - Insomnia [Unknown]
  - Seasonal allergy [Unknown]

NARRATIVE: CASE EVENT DATE: 20150115
